FAERS Safety Report 5514079-7 (Version None)
Quarter: 2007Q4

REPORT INFORMATION
  Report Type: 
  Country: None (occurrence: None)
  Receive Date: 20071113
  Receipt Date: 20071106
  Transmission Date: 20080405
  Serious: Yes (Hospitalization)
  Sender: FDA-Public Use
  Company Number: JP-AVENTIS-200712997JP

PATIENT

DRUGS (3)
  1. ARAVA [Suspect]
     Dates: end: 20070401
  2. ENBREL [Concomitant]
  3. METHOTREXATE [Concomitant]

REACTIONS (1)
  - GLOMERULONEPHRITIS RAPIDLY PROGRESSIVE [None]
